FAERS Safety Report 23996237 (Version 1)
Quarter: 2024Q2

REPORT INFORMATION
  Report Type: Spontaneous
  Country: ES (occurrence: ES)
  Receive Date: 20240620
  Receipt Date: 20240620
  Transmission Date: 20240716
  Serious: Yes (Life-Threatening, Hospitalization)
  Sender: FDA-Public Use
  Company Number: None

PATIENT
  Age: 47 Year
  Sex: Female

DRUGS (5)
  1. METHOTREXATE SODIUM [Suspect]
     Active Substance: METHOTREXATE SODIUM
     Dosage: 200 MG IN BOLUS, 400 MG IN CONTINUOUS INFUSION FOR 12 H, CYCLIC
     Route: 042
     Dates: start: 20240507, end: 20240507
  2. DACTINOMYCIN [Suspect]
     Active Substance: DACTINOMYCIN
     Indication: Gestational trophoblastic tumour
     Dosage: DAY 1: 600 UG
     Route: 042
     Dates: start: 20240507, end: 20240507
  3. DACTINOMYCIN [Suspect]
     Active Substance: DACTINOMYCIN
     Dosage: DAY 2: 700 UG
     Route: 042
     Dates: start: 20240508, end: 20240508
  4. ETOPOSIDE [Suspect]
     Active Substance: ETOPOSIDE
     Indication: Gestational trophoblastic tumour
     Dosage: CYCLE 1 DAY 1: 200 MG
     Route: 042
     Dates: start: 20240507, end: 20240507
  5. ETOPOSIDE [Suspect]
     Active Substance: ETOPOSIDE
     Dosage: CYCLE 1 DAY 2 200 MG (100 MG/M2)
     Route: 042
     Dates: start: 20240508, end: 20240508

REACTIONS (3)
  - Pancytopenia [Recovering/Resolving]
  - Agranulocytosis [Recovered/Resolved]
  - Dermatitis acneiform [Recovered/Resolved]

NARRATIVE: CASE EVENT DATE: 20240510
